FAERS Safety Report 22254416 (Version 3)
Quarter: 2023Q2

REPORT INFORMATION
  Report Type: Report from Study
  Country: BR (occurrence: BR)
  Receive Date: 20230426
  Receipt Date: 20230630
  Transmission Date: 20230722
  Serious: Yes (Other)
  Sender: FDA-Public Use
  Company Number: BR-002147023-NVSC2023BR043805

PATIENT
  Sex: Female
  Weight: 61 kg

DRUGS (3)
  1. KISQALI [Suspect]
     Active Substance: RIBOCICLIB
     Indication: Breast cancer
     Dosage: UNK
     Route: 065
  2. KISQALI [Suspect]
     Active Substance: RIBOCICLIB
     Dosage: 3 DOSAGE FORM
     Route: 065
     Dates: start: 202302
  3. KISQALI [Suspect]
     Active Substance: RIBOCICLIB
     Dosage: 2 DOSAGE FORM
     Route: 065

REACTIONS (16)
  - Chest injury [Recovering/Resolving]
  - Increased appetite [Recovering/Resolving]
  - Musculoskeletal chest pain [Recovering/Resolving]
  - Skin exfoliation [Unknown]
  - Breast mass [Unknown]
  - Fall [Recovered/Resolved]
  - Swelling [Not Recovered/Not Resolved]
  - Dry skin [Unknown]
  - Anaemia [Unknown]
  - Dizziness [Recovered/Resolved]
  - Diarrhoea [Recovering/Resolving]
  - Headache [Recovering/Resolving]
  - Nausea [Recovering/Resolving]
  - Dyspnoea [Recovering/Resolving]
  - Fatigue [Unknown]
  - Inappropriate schedule of product administration [Unknown]

NARRATIVE: CASE EVENT DATE: 20230601
